FAERS Safety Report 6677271-4 (Version None)
Quarter: 2010Q2

REPORT INFORMATION
  Report Type: 
  Country: None (occurrence: None)
  Receive Date: 20100412
  Receipt Date: 20100401
  Transmission Date: 20101027
  Serious: Yes (Hospitalization)
  Sender: FDA-Public Use
  Company Number: TR-ELI_LILLY_AND_COMPANY-TR201004001412

PATIENT

DRUGS (4)
  1. HUMULIN R [Suspect]
     Indication: GESTATIONAL DIABETES
     Dosage: 9 IU, EACH MORNING
     Route: 064
     Dates: start: 20090801, end: 20100219
  2. HUMULIN R [Suspect]
     Dosage: 9 IU, AT NOON
     Route: 064
     Dates: start: 20090801, end: 20100219
  3. HUMULIN R [Suspect]
     Dosage: 9 IU, EACH EVENING
     Route: 064
     Dates: start: 20090801, end: 20100219
  4. HUMULIN N [Suspect]
     Indication: GESTATIONAL DIABETES
     Dosage: 9 U, DAILY (1/D)
     Route: 064
     Dates: start: 20090801, end: 20100219

REACTIONS (3)
  - BLOOD GLUCOSE DECREASED [None]
  - DRUG EXPOSURE DURING PREGNANCY [None]
  - PREMATURE BABY [None]
